FAERS Safety Report 21808162 (Version 1)
Quarter: 2023Q1

REPORT INFORMATION
  Report Type: Spontaneous
  Country: US (occurrence: US)
  Receive Date: 20230103
  Receipt Date: 20230103
  Transmission Date: 20230417
  Serious: Yes (Other)
  Sender: FDA-Public Use
  Company Number: US-UROGEN PHARMA LTD.-2022-UGN-000132

PATIENT

DRUGS (2)
  1. JELMYTO [Suspect]
     Active Substance: MITOMYCIN
     Indication: Product used for unknown indication
     Dosage: UNK (INSTILLATION)
     Route: 065
  2. JELMYTO [Suspect]
     Active Substance: MITOMYCIN
     Dosage: UNK (INSTILLATION)
     Route: 065

REACTIONS (1)
  - Ureteric stenosis [Unknown]
